FAERS Safety Report 10081073 (Version 1)
Quarter: 2014Q2

REPORT INFORMATION
  Report Type: Spontaneous
  Country: US (occurrence: None)
  Receive Date: 20140414
  Receipt Date: 20140414
  Transmission Date: 20141212
  Serious: Yes (Death, Other)
  Sender: FDA-Public Use
  Company Number: 7279633

PATIENT
  Age: 83 Year
  Sex: Female

DRUGS (3)
  1. LEVOTHYROXINE [Suspect]
     Dosage: SINCE 2 YEARS
  2. METOLAZONE [Suspect]
     Dosage: SINCE 2 YEARS
  3. LOSARTAN [Suspect]
     Dosage: SINCE 2 YEARS

REACTIONS (4)
  - Cardio-respiratory arrest [None]
  - Arthralgia [None]
  - Pain in extremity [None]
  - Dementia Alzheimer^s type [None]
